FAERS Safety Report 9771338 (Version 3)
Quarter: 2014Q2

REPORT INFORMATION
  Report Type: Spontaneous
  Country: US (occurrence: US)
  Receive Date: 20131218
  Receipt Date: 20140422
  Transmission Date: 20141212
  Serious: Yes (Other)
  Sender: FDA-Public Use
  Company Number: US-AMGEN-USASP2013088843

PATIENT
  Age: 60 Year
  Sex: 0

DRUGS (2)
  1. PROCRIT [Suspect]
     Indication: PRODUCT USED FOR UNKNOWN INDICATION
     Dosage: 10000 UNIT, UNK
     Route: 058
  2. FUROSEMIDE [Concomitant]
     Dosage: 40 MG, QD

REACTIONS (4)
  - Renal failure chronic [Unknown]
  - Urinary tract infection [Unknown]
  - Pain [Unknown]
  - Vomiting [Unknown]
